FAERS Safety Report 7757592-4 (Version None)
Quarter: 2011Q3

REPORT INFORMATION
  Report Type: 
  Country: None (occurrence: None)
  Receive Date: 20110916
  Receipt Date: 20110908
  Transmission Date: 20111222
  Serious: Yes (Other)
  Sender: FDA-Public Use
  Company Number: US-B.I. PHARMACEUTICALS,INC./RIDGEFIELD-2011-BP-19921BP

PATIENT
  Sex: Female
  Weight: 68.95 kg

DRUGS (8)
  1. PREMARIN [Concomitant]
     Route: 048
  2. PRADAXA [Suspect]
     Indication: ATRIAL FIBRILLATION
     Dosage: 300 MG
     Route: 048
     Dates: start: 20110811, end: 20110812
  3. COREG [Concomitant]
     Indication: HYPERTENSION
     Dosage: 6.25 MG
     Route: 048
  4. ALTACE [Concomitant]
     Dosage: 10 MG
  5. LEVOXYL [Concomitant]
     Indication: HYPOTHYROIDISM
     Dosage: 50 MCG
     Route: 048
  6. CLONIDINE [Concomitant]
     Dosage: 0.1 MG
  7. HYDROCODONE [Concomitant]
     Route: 048
  8. RAMIPRIL [Concomitant]
     Indication: HYPERTENSION
     Route: 048

REACTIONS (4)
  - DYSPNOEA [None]
  - BLOOD PRESSURE INCREASED [None]
  - FATIGUE [None]
  - PAIN [None]
